FAERS Safety Report 17179996 (Version 1)
Quarter: 2019Q4

REPORT INFORMATION
  Report Type: Spontaneous
  Country: AU (occurrence: AU)
  Receive Date: 20191219
  Receipt Date: 20191219
  Transmission Date: 20200122
  Serious: Yes (Hospitalization)
  Sender: FDA-Public Use
  Company Number: AU-MACLEODS PHARMACEUTICALS US LTD-MAC2019024381

PATIENT

DRUGS (2)
  1. S-ADENOSYL-L-METHIONINE [Suspect]
     Active Substance: ADEMETIONINE
     Indication: DEPRESSION
     Dosage: UNK
     Route: 065
  2. ESCITALOPRAM [Suspect]
     Active Substance: ESCITALOPRAM OXALATE
     Indication: DEPRESSION
     Dosage: 10 MILLIGRAM, MANE
     Route: 065

REACTIONS (1)
  - Substance-induced mood disorder [Recovered/Resolved]
